FAERS Safety Report 6387766-9 (Version None)
Quarter: 2009Q4

REPORT INFORMATION
  Report Type: 
  Country: None (occurrence: None)
  Receive Date: 20091005
  Receipt Date: 20090924
  Transmission Date: 20100525
  Serious: Yes (Other)
  Sender: FDA-Public Use
  Company Number: DE-PFIZER INC-2009251144

PATIENT

DRUGS (1)
  1. CLINDAMYCIN [Suspect]

REACTIONS (2)
  - HYPERSENSITIVITY [None]
  - RASH PRURITIC [None]
